FAERS Safety Report 5077654-2 (Version None)
Quarter: 2006Q3

REPORT INFORMATION
  Report Type: 
  Country: None (occurrence: None)
  Receive Date: 20060810
  Receipt Date: 20060804
  Transmission Date: 20061208
  Serious: Yes (Other)
  Sender: FDA-Public Use
  Company Number: 2006UW15623

PATIENT
  Age: 54 Year
  Sex: Female
  Weight: 72.6 kg

DRUGS (3)
  1. IRESSA [Suspect]
     Indication: LUNG NEOPLASM MALIGNANT
     Route: 048
  2. FOSAMAX [Concomitant]
  3. NEXIUM [Concomitant]

REACTIONS (1)
  - SARCOIDOSIS [None]
